FAERS Safety Report 4754119-6 (Version None)
Quarter: 2005Q3

REPORT INFORMATION
  Report Type: 
  Country: None (occurrence: None)
  Receive Date: 20050826
  Receipt Date: 20050720
  Transmission Date: 20060218
  Serious: Yes (Other)
  Sender: FDA-Public Use
  Company Number: JP-MERCK-0507USA03632

PATIENT
  Age: 70 Year
  Sex: Male
  Weight: 72 kg

DRUGS (7)
  1. LENDORMIN [Suspect]
     Indication: INSOMNIA
     Route: 048
     Dates: start: 20040513, end: 20040519
  2. BROMHEXINE HYDROCHLORIDE [Suspect]
     Indication: SPUTUM RETENTION
     Route: 048
     Dates: start: 20040424, end: 20040516
  3. NORVASC [Suspect]
     Indication: HYPERTENSION
     Route: 048
     Dates: start: 20040419, end: 20040419
  4. ATENOLOL [Suspect]
     Indication: HYPERTENSION
     Route: 048
     Dates: start: 20040419, end: 20040519
  5. PRIMAXIN [Suspect]
     Indication: POSTOPERATIVE INFECTION
     Route: 041
     Dates: start: 20040430, end: 20040519
  6. VANCOMYCIN [Suspect]
     Indication: BACTERIAL SEPSIS
     Route: 042
     Dates: start: 20040430, end: 20040515
  7. BIOFERMIN [Suspect]
     Indication: GASTRIC DISORDER
     Route: 048
     Dates: start: 20040501, end: 20040515

REACTIONS (10)
  - DRUG ERUPTION [None]
  - ERYTHEMA [None]
  - HAEMATOCRIT DECREASED [None]
  - LYMPHOCYTE COUNT DECREASED [None]
  - LYMPHOCYTE PERCENTAGE DECREASED [None]
  - MONOCYTE PERCENTAGE DECREASED [None]
  - PLATELET COUNT DECREASED [None]
  - RED BLOOD CELL COUNT DECREASED [None]
  - SKIN TEST POSITIVE [None]
  - TOXIC EPIDERMAL NECROLYSIS [None]
